FAERS Safety Report 4923886-0 (Version None)
Quarter: 2006Q1

REPORT INFORMATION
  Report Type: 
  Country: None (occurrence: None)
  Receive Date: 20060221
  Receipt Date: 20060208
  Transmission Date: 20060701
  Serious: Yes (Other)
  Sender: FDA-Public Use
  Company Number: 2005149519

PATIENT
  Age: 76 Year
  Sex: Female
  Weight: 34.5 kg

DRUGS (13)
  1. VFEND [Suspect]
     Indication: ASPERGILLOSIS
     Dosage: 200 MG (2 IN 1 D), INTRAVENOUS
     Route: 042
     Dates: start: 20050810, end: 20051014
  2. VFEND [Suspect]
     Indication: ASPERGILLOSIS
     Dosage: 200 MG (2 IN 1 D), ORAL
     Route: 048
     Dates: start: 20051015, end: 20051018
  3. ALL OTHER THERAPEUTIC PRODUCTS (ALL OTHER THERAPEUTIC PRODUCTS) [Suspect]
     Indication: PNEUMONIA
     Dosage: 0.6 GRAM (2 IN 1 D), INTRAVENOUS
     Route: 042
     Dates: start: 20051003, end: 20051014
  4. LANSOPRAZOLE [Concomitant]
  5. PAXIL (PAROXETINE HYDROCHLORIDE) [Concomitant]
  6. TETRAMIDE (MIANSERIN HYROCHLORIDE) [Concomitant]
  7. TENORMIN [Concomitant]
  8. ONE-ALPHA (ALFACALCIDOL) [Concomitant]
  9. PURSENNID (SENNA LEAF) [Concomitant]
  10. SUCRALFATE [Concomitant]
  11. VANCOMIN (MECOBALAMIN) [Concomitant]
  12. DEPAS (ETIZOLAM) [Concomitant]
  13. MAGNESIUM OXIDE (MAGNESIUM OXIDE) [Concomitant]

REACTIONS (9)
  - BLOOD URINE PRESENT [None]
  - DEPRESSION [None]
  - LUNG INFECTION [None]
  - OEDEMA PERIPHERAL [None]
  - PNEUMONIA [None]
  - PURPURA [None]
  - RASH [None]
  - REFLUX OESOPHAGITIS [None]
  - STAPHYLOCOCCAL INFECTION [None]
